FAERS Safety Report 9369053 (Version 1)
Quarter: 2013Q2

REPORT INFORMATION
  Report Type: Spontaneous
  Country: US (occurrence: US)
  Receive Date: 20130626
  Receipt Date: 20130626
  Transmission Date: 20140414
  Serious: No
  Sender: FDA-Public Use
  Company Number: US-BIOGENIDEC-2013BI053816

PATIENT
  Age: 70 Year
  Sex: Female

DRUGS (1)
  1. AVONEX [Suspect]
     Indication: MULTIPLE SCLEROSIS
     Route: 030
     Dates: start: 20030709, end: 20030915

REACTIONS (11)
  - Lung disorder [Recovered/Resolved]
  - Nipple exudate bloody [Recovered/Resolved]
  - Breast discharge [Recovered/Resolved]
  - Large intestine polyp [Recovered/Resolved]
  - Abdominal pain upper [Recovered/Resolved]
  - Injection site mass [Recovered/Resolved]
  - Hepatic enzyme increased [Recovered/Resolved]
  - Chills [Recovered/Resolved]
  - Alopecia [Recovered/Resolved]
  - Influenza like illness [Recovered/Resolved]
  - Injection site erythema [Recovered/Resolved]
